FAERS Safety Report 8141247-0 (Version None)
Quarter: 2012Q1

REPORT INFORMATION
  Report Type: 
  Country: None (occurrence: None)
  Receive Date: 20120216
  Receipt Date: 20120209
  Transmission Date: 20120608
  Serious: Yes (Hospitalization)
  Sender: FDA-Public Use
  Company Number: ZA-PFIZER INC-2008085334

PATIENT
  Age: 59 Year
  Sex: Male

DRUGS (10)
  1. COXFLAM [Concomitant]
     Indication: OSTEOARTHRITIS
     Dosage: UNK
     Route: 048
  2. GLIPIZIDE [Suspect]
     Dosage: UNK
     Dates: start: 20081009, end: 20081128
  3. METFORMIN HCL [Concomitant]
     Indication: TYPE 2 DIABETES MELLITUS
     Dosage: UNK
     Route: 048
     Dates: end: 20080729
  4. GLIPIZIDE [Suspect]
     Indication: TYPE 2 DIABETES MELLITUS
     Dosage: UNK
     Route: 048
     Dates: start: 20080813, end: 20080927
  5. IRBESARTAN [Concomitant]
     Dosage: UNK
     Route: 048
     Dates: start: 20080709
  6. METFORMIN HCL [Concomitant]
     Dosage: UNK
     Dates: end: 20081202
  7. IRBESARTAN [Concomitant]
     Dosage: UNK
     Dates: start: 20080709
  8. HYDROCHLOROTHIAZIDE [Concomitant]
     Dosage: UNK
     Dates: start: 20080709
  9. MELOXICAM [Concomitant]
     Dosage: UNK
  10. GLUCOPHAGE [Concomitant]
     Dosage: UNK
     Dates: start: 20080730, end: 20081128

REACTIONS (2)
  - PYELONEPHRITIS [None]
  - NEPHROLITHIASIS [None]
